FAERS Safety Report 15931099 (Version 2)
Quarter: 2019Q2

REPORT INFORMATION
  Report Type: Spontaneous
  Country: US (occurrence: US)
  Receive Date: 20190207
  Receipt Date: 20190405
  Transmission Date: 20190711
  Serious: Yes (Other)
  Sender: FDA-Public Use
  Company Number: US-GLAXOSMITHKLINE-US2019017215

PATIENT
  Sex: Female
  Weight: 62.59 kg

DRUGS (1)
  1. SENSODYNE FRESH MINT [Suspect]
     Active Substance: POTASSIUM NITRATE\SODIUM FLUORIDE
     Indication: HYPERAESTHESIA TEETH
     Dosage: UNK
     Dates: start: 2008, end: 2018

REACTIONS (1)
  - Lip and/or oral cavity cancer [Unknown]
